FAERS Safety Report 8399604-3 (Version None)
Quarter: 2012Q2

REPORT INFORMATION
  Report Type: 
  Country: None (occurrence: None)
  Receive Date: 20120531
  Receipt Date: 20120516
  Transmission Date: 20120825
  Serious: Yes (Congenital Anomaly)
  Sender: FDA-Public Use
  Company Number: DE-WATSON-2012-08456

PATIENT
  Sex: Male
  Weight: 3 kg

DRUGS (11)
  1. MONUROL [Concomitant]
     Indication: URINARY TRACT INFECTION
     Dosage: 3000 [MG/D ]
     Route: 064
  2. ARIXTRA [Concomitant]
     Indication: FACTOR V LEIDEN MUTATION
     Dosage: 2.5 [MG/D ]
     Route: 064
  3. METOPROLOL TARTRATE [Suspect]
     Indication: HYPERTENSION
     Dosage: ^47.5 [MG/D ]/ + PRECON, SINCE SEVERAL YEARS 2X23.75 MG/D^
     Route: 064
     Dates: start: 20110208, end: 20110701
  4. DALTEPARIN SODIUM [Concomitant]
     Indication: FACTOR V LEIDEN MUTATION
     Dosage: 5000 [I.E./D ]
     Route: 064
     Dates: start: 20110208, end: 20110825
  5. CETIRIZINE HCL [Concomitant]
     Indication: HYPERSENSITIVITY
     Dosage: 10 [MG/D ]
     Route: 064
     Dates: start: 20110825
  6. PROGESTERONE [Concomitant]
     Indication: PROPHYLAXIS OF ABORTION
     Dosage: 200 [MG/D ]
     Route: 064
     Dates: start: 20110208
  7. PREDNISOLONE [Concomitant]
     Indication: HYPERSENSITIVITY
     Dosage: 20 [MG/D ]
     Route: 064
     Dates: start: 20110827, end: 20110830
  8. ENOXAPARIN [Concomitant]
     Indication: FACTOR V LEIDEN MUTATION
     Dosage: 60 [MG/D ]
     Route: 064
     Dates: end: 20111103
  9. BISOPROLOL FUMARATE [Suspect]
     Indication: HYPERTENSION
     Dosage: 2.5 [MG/D ]/ UP TO 2.5 MG/D
     Route: 064
     Dates: start: 20110702, end: 20110824
  10. CEFUROXIM                          /00454602/ [Concomitant]
     Indication: URINARY TRACT INFECTION
     Dosage: 1000 [MG/D ]/ GW 18 FOR 6 DAYS, 2X500 MG/D, GW 27 DURATION UNKNOWN
     Route: 064
  11. FOLIC ACID [Concomitant]
     Indication: PROPHYLAXIS OF NEURAL TUBE DEFECT
     Dosage: 0.8 [MG/D (BIS 0.4) ]
     Route: 064
     Dates: start: 20110208, end: 20111103

REACTIONS (3)
  - HYDROCELE [None]
  - HYPOSPADIAS [None]
  - SMALL FOR DATES BABY [None]
